FAERS Safety Report 21368846 (Version 4)
Quarter: 2022Q4

REPORT INFORMATION
  Report Type: Report from Study
  Country: US (occurrence: US)
  Receive Date: 20220923
  Receipt Date: 20221226
  Transmission Date: 20230112
  Serious: Yes (Hospitalization)
  Sender: FDA-Public Use
  Company Number: US-GBT-016509

PATIENT
  Age: 23 Year
  Sex: Male

DRUGS (22)
  1. OXBRYTA [Suspect]
     Active Substance: VOXELOTOR
     Indication: Sickle cell disease
     Dosage: ON AN UNKNOWN DATE IN 2022, THE PATIENT RECEIVED THE LAST DOSE OF THE OXBRYTA PRIOR TO EVENT ONSET.
     Dates: start: 20220408
  2. folic acid (folvite) [Concomitant]
     Indication: Sickle cell disease
     Route: 048
     Dates: start: 20121214
  3. MS CONTIN [Concomitant]
     Active Substance: MORPHINE SULFATE
     Indication: Sickle cell disease
     Route: 048
     Dates: start: 20220531
  4. MOTRIN [Concomitant]
     Active Substance: IBUPROFEN
     Indication: Sickle cell disease
     Route: 048
     Dates: start: 20200402
  5. amoxicillin (Amoxil) [Concomitant]
     Indication: Prophylaxis
     Route: 048
     Dates: start: 20190322
  6. lidocaine (aspercreme)  4% transdermal?patch [Concomitant]
     Indication: Sickle cell disease
     Dosage: DOSAGE: 1 U 1 PATCH
     Route: 062
     Dates: start: 20220821
  7. PEPCID [Concomitant]
     Active Substance: FAMOTIDINE
     Indication: Sickle cell disease
     Route: 048
     Dates: start: 20220728
  8. TYLENOL [Concomitant]
     Active Substance: ACETAMINOPHEN
     Indication: Sickle cell disease
     Route: 048
     Dates: start: 20211217
  9. crizanlizumab-tmca (Adakveo) in NaCl?0.9% 100 mL infusion [Concomitant]
     Indication: Sickle cell disease
     Route: 042
     Dates: start: 20211217
  10. oxycodone IR (roxicodone) [Concomitant]
     Indication: Sickle cell disease
     Route: 048
     Dates: start: 20220923
  11. Hydrea (hydroxyurea) [Concomitant]
     Indication: Sickle cell disease
     Dosage: ALTERNATE 1500/2000 MG
     Route: 048
     Dates: start: 20170719
  12. cholecalciferol (vitamin D3) 25 mcg (1,000?unit) tablet [Concomitant]
     Indication: Product used for unknown indication
     Route: 048
     Dates: start: 20220708
  13. BENZACLIN [Concomitant]
     Active Substance: BENZOYL PEROXIDE\CLINDAMYCIN PHOSPHATE
     Indication: Product used for unknown indication
  14. NEURONTIN [Concomitant]
     Active Substance: GABAPENTIN
     Indication: Sickle cell disease
     Route: 048
     Dates: start: 20220809
  15. ZOFRAN [Concomitant]
     Active Substance: ONDANSETRON HYDROCHLORIDE
     Indication: Product used for unknown indication
  16. pericolace [Concomitant]
     Indication: Product used for unknown indication
  17. ZYRTEC [Concomitant]
     Active Substance: CETIRIZINE HYDROCHLORIDE
     Indication: Product used for unknown indication
  18. LIDOCAINE [Concomitant]
     Active Substance: LIDOCAINE
     Indication: Product used for unknown indication
  19. lisinopril (prinivil) [Concomitant]
     Indication: Product used for unknown indication
     Route: 048
     Dates: start: 20220401
  20. SEROQUEL [Concomitant]
     Active Substance: QUETIAPINE FUMARATE
     Indication: Product used for unknown indication
  21. ZOLOFT [Concomitant]
     Active Substance: SERTRALINE HYDROCHLORIDE
     Indication: Product used for unknown indication
  22. AMOXICILLIN [Concomitant]
     Active Substance: AMOXICILLIN
     Indication: Product used for unknown indication
     Dates: end: 202209

REACTIONS (1)
  - Sickle cell anaemia with crisis [Recovered/Resolved]

NARRATIVE: CASE EVENT DATE: 20220910
